FAERS Safety Report 9006082 (Version 3)
Quarter: 2013Q2

REPORT INFORMATION
  Report Type: Report from Study
  Country: US (occurrence: US)
  Receive Date: 20130109
  Receipt Date: 20130418
  Transmission Date: 20140414
  Serious: Yes (Hospitalization, Other)
  Sender: FDA-Public Use
  Company Number: PHEH2013US000813

PATIENT
  Age: 56 Year
  Sex: Male

DRUGS (10)
  1. GILENYA [Suspect]
     Indication: MULTIPLE SCLEROSIS
     Dosage: 0.5 MG, QD
     Route: 048
     Dates: start: 201204
  2. METOPROLOL [Concomitant]
     Indication: CORONARY ARTERY DISEASE
     Dosage: 100 MG, QD
     Route: 048
  3. ECOTRIN [Concomitant]
     Indication: CORONARY ARTERY DISEASE
     Dosage: 81 MG, QD
     Route: 048
  4. LASIX [Concomitant]
     Dosage: 40 MG, BID
     Route: 048
  5. PRINIVIL [Concomitant]
     Indication: HYPERTENSION
     Dosage: 5 MG, QD
     Route: 048
  6. ZESTRIL [Concomitant]
     Dosage: 5 MG, QD
     Route: 048
  7. GLUCOPHAGE [Concomitant]
     Indication: DIABETES MELLITUS
     Dosage: 500 MG, BID
     Route: 048
  8. K-DUR [Concomitant]
     Dosage: 20 MEQ, QD
     Route: 048
  9. KLOR-CON [Concomitant]
     Dosage: 20 MEQ, QD
     Route: 048
  10. CRESTOR [Concomitant]
     Indication: HIGH DENSITY LIPOPROTEIN
     Dosage: 20 MG, QD
     Route: 048

REACTIONS (7)
  - Acute myocardial infarction [Recovered/Resolved]
  - Angina pectoris [Recovering/Resolving]
  - Chest discomfort [Recovering/Resolving]
  - Dyspnoea [Recovering/Resolving]
  - Hypotension [Recovering/Resolving]
  - Eye haemorrhage [Unknown]
  - Paraesthesia [Unknown]
